FAERS Safety Report 13353457 (Version 1)
Quarter: 2017Q1

REPORT INFORMATION
  Report Type: Spontaneous
  Country: US (occurrence: US)
  Receive Date: 20170321
  Receipt Date: 20170321
  Transmission Date: 20170429
  Serious: Yes (Death)
  Sender: FDA-Public Use
  Company Number: US-ROCHE-1909187

PATIENT
  Age: 72 Year
  Sex: Female

DRUGS (2)
  1. FENOFIBRATE. [Concomitant]
     Active Substance: FENOFIBRATE
     Route: 065
  2. LUCENTIS [Suspect]
     Active Substance: RANIBIZUMAB
     Indication: NEOVASCULAR AGE-RELATED MACULAR DEGENERATION
     Dosage: SOL 0.5MG 0.05ML
     Route: 065
     Dates: start: 20160126, end: 20160930

REACTIONS (1)
  - Death [Fatal]

NARRATIVE: CASE EVENT DATE: 201702
